FAERS Safety Report 5809211-1 (Version None)
Quarter: 2008Q3

REPORT INFORMATION
  Report Type: 
  Country: None (occurrence: None)
  Receive Date: 20080714
  Receipt Date: 20080705
  Transmission Date: 20090109
  Serious: Yes (Other)
  Sender: FDA-Public Use
  Company Number: US-PFIZER INC-2008056301

PATIENT
  Sex: Female
  Weight: 70.454 kg

DRUGS (1)
  1. XALATAN [Suspect]
     Indication: GLAUCOMA
     Route: 061

REACTIONS (5)
  - INCORRECT DOSE ADMINISTERED [None]
  - INTESTINAL RESECTION [None]
  - VISION BLURRED [None]
  - VISUAL IMPAIRMENT [None]
  - WOUND [None]
